FAERS Safety Report 7038275-5 (Version None)
Quarter: 2010Q4

REPORT INFORMATION
  Report Type: 
  Country: None (occurrence: None)
  Receive Date: 20101011
  Receipt Date: 20100105
  Transmission Date: 20110411
  Serious: No
  Sender: FDA-Public Use
  Company Number: US-PFIZER INC-2009297585

PATIENT
  Sex: Male
  Weight: 93 kg

DRUGS (10)
  1. NEURONTIN [Suspect]
     Indication: FACIAL PAIN
     Dosage: 300 MG, 1X/DAY
     Route: 048
     Dates: start: 20091023, end: 20091028
  2. NEURONTIN [Suspect]
     Dosage: 200 MG, UNK
     Dates: start: 20091022, end: 20091022
  3. NEURONTIN [Suspect]
     Dosage: 100 MG, UNK
     Dates: start: 20091021, end: 20091021
  4. LYRICA [Suspect]
     Indication: FACIAL PAIN
     Dosage: 75 MG, 2X/DAY
     Route: 048
     Dates: start: 20091028
  5. LISINOPRIL [Concomitant]
     Indication: BLOOD PRESSURE INCREASED
     Dosage: 5 MG, 1X/DAY
     Route: 048
  6. PLAVIX [Concomitant]
     Indication: CORONARY ARTERIAL STENT INSERTION
     Dosage: 75 MG, 1X/DAY
     Route: 048
  7. PREDNISONE [Concomitant]
     Indication: ASTHMA
     Dosage: 10 MG, 1X/DAY
     Route: 048
  8. MONTELUKAST SODIUM [Concomitant]
     Indication: ASTHMA
     Dosage: UNK
     Route: 048
  9. PREVACID [Concomitant]
     Indication: GASTROOESOPHAGEAL REFLUX DISEASE
     Dosage: UNK
     Route: 048
  10. ALLERX [Concomitant]
     Indication: HYPERSENSITIVITY
     Dosage: UNK
     Route: 048

REACTIONS (4)
  - BALANCE DISORDER [None]
  - DIZZINESS [None]
  - DRUG INEFFECTIVE [None]
  - NAUSEA [None]
